FAERS Safety Report 23445644 (Version 1)
Quarter: 2024Q1

REPORT INFORMATION
  Report Type: Spontaneous
  Country: ES (occurrence: ES)
  Receive Date: 20240126
  Receipt Date: 20240126
  Transmission Date: 20240409
  Serious: Yes (Hospitalization, Other)
  Sender: FDA-Public Use
  Company Number: ES-EPICPHARMA-ES-2024EPCLIT00158

PATIENT
  Age: 53 Year
  Sex: Male

DRUGS (5)
  1. HALOPERIDOL LACTATE [Suspect]
     Active Substance: HALOPERIDOL LACTATE
     Indication: Psychiatric decompensation
     Route: 065
  2. AMISULPRIDE [Suspect]
     Active Substance: AMISULPRIDE
     Indication: Psychiatric decompensation
     Route: 065
  3. OLANZAPINE [Suspect]
     Active Substance: OLANZAPINE
     Indication: Psychiatric decompensation
     Route: 065
  4. LORMETAZEPAM [Suspect]
     Active Substance: LORMETAZEPAM
     Indication: Psychiatric decompensation
     Route: 065
  5. CLOTHIAPINE [Suspect]
     Active Substance: CLOTHIAPINE
     Indication: Psychiatric decompensation
     Route: 065

REACTIONS (1)
  - Anticholinergic syndrome [Recovering/Resolving]
